FAERS Safety Report 22019941 (Version 2)
Quarter: 2023Q1

REPORT INFORMATION
  Report Type: Spontaneous
  Country: US (occurrence: US)
  Receive Date: 20230222
  Receipt Date: 20230228
  Transmission Date: 20230417
  Serious: No
  Sender: FDA-Public Use
  Company Number: US-UNITED THERAPEUTICS-UNT-2023-001475

PATIENT
  Sex: Male

DRUGS (3)
  1. REMODULIN [Suspect]
     Active Substance: TREPROSTINIL
     Indication: Pulmonary arterial hypertension
     Dosage: 0.0854 ?G/KG , CONTINUING
     Route: 058
  2. REMODULIN [Suspect]
     Active Substance: TREPROSTINIL
     Dosage: UNK, CONTINUING
  3. AMBRISENTAN [Concomitant]
     Active Substance: AMBRISENTAN
     Indication: Product used for unknown indication
     Dosage: UNK
     Route: 065

REACTIONS (12)
  - Device dislocation [Unknown]
  - Product leakage [Unknown]
  - Infusion site rash [Unknown]
  - Blister [Unknown]
  - Scar [Unknown]
  - Exposure via skin contact [Unknown]
  - Infusion site pruritus [Unknown]
  - Infusion site infection [Unknown]
  - Infusion site swelling [Unknown]
  - Device adhesion issue [Unknown]
  - Device placement issue [Unknown]
  - Infusion site pain [Unknown]

NARRATIVE: CASE EVENT DATE: 20220101
